FAERS Safety Report 10039690 (Version 1)
Quarter: 2014Q1

REPORT INFORMATION
  Report Type: Spontaneous
  Country: FR (occurrence: FR)
  Receive Date: 20140326
  Receipt Date: 20140326
  Transmission Date: 20141002
  Serious: Yes (Hospitalization, Other)
  Sender: FDA-Public Use
  Company Number: FR-JNJFOC-20140311550

PATIENT
  Age: 80 Year
  Sex: Male

DRUGS (5)
  1. XARELTO [Suspect]
     Indication: PRODUCT USED FOR UNKNOWN INDICATION
     Route: 048
  2. UNKNOWN MEDICATION [Interacting]
     Indication: PRODUCT USED FOR UNKNOWN INDICATION
     Route: 065
  3. PREVISCAN (FLUINDIONE) [Concomitant]
     Route: 065
  4. KARDEGIC [Concomitant]
     Route: 065
  5. TIABENDAZOLE [Concomitant]
     Route: 065

REACTIONS (6)
  - Haematoma [Unknown]
  - Procedural haemorrhage [Unknown]
  - Oedema [Unknown]
  - Puncture site haemorrhage [Unknown]
  - Post procedural haemorrhage [Unknown]
  - Drug interaction [Unknown]
